FAERS Safety Report 11165654 (Version 1)
Quarter: 2015Q2

REPORT INFORMATION
  Report Type: Spontaneous
  Country: CO (occurrence: CO)
  Receive Date: 20150604
  Receipt Date: 20150604
  Transmission Date: 20150821
  Serious: Yes (Death, Hospitalization)
  Sender: FDA-Public Use
  Company Number: CO-ASTELLAS-2015US019155

PATIENT
  Age: 52 Year
  Sex: Female

DRUGS (1)
  1. ADVAGRAF [Suspect]
     Active Substance: TACROLIMUS
     Indication: RENAL TRANSPLANT
     Route: 048
     Dates: start: 20130907, end: 20150328

REACTIONS (2)
  - Cardio-respiratory arrest [Fatal]
  - Asphyxia [Fatal]

NARRATIVE: CASE EVENT DATE: 20150319
